FAERS Safety Report 8821124 (Version 1)
Quarter: 2012Q4

REPORT INFORMATION
  Report Type: 
  Country: US (occurrence: US)
  Receive Date: 20121002
  Receipt Date: 20121002
  Transmission Date: 20130627
  Serious: Yes (Other)
  Sender: FDA-Public Use
  Company Number: US-WATSON-2012-16830

PATIENT
  Age: 59 Year
  Sex: Male

DRUGS (1)
  1. SULFASALAZINE [Suspect]
     Indication: CROHN^S DISEASE
     Dosage: 2 g, tid
     Route: 048

REACTIONS (5)
  - Pleural effusion [Recovered/Resolved]
  - Pericardial effusion [Recovered/Resolved]
  - Sinus tachycardia [None]
  - Electrocardiogram ST-T change [None]
  - Cardiac murmur [None]
